FAERS Safety Report 7167852-6 (Version None)
Quarter: 2010Q4

REPORT INFORMATION
  Report Type: 
  Country: None (occurrence: None)
  Receive Date: 20101216
  Receipt Date: 20101209
  Transmission Date: 20110411
  Serious: Yes (Other)
  Sender: FDA-Public Use
  Company Number: SE-PFIZER INC-2010139193

PATIENT
  Age: 42 Year
  Sex: Male

DRUGS (1)
  1. ZOLOFT [Suspect]
     Dosage: 25 MG, UNK

REACTIONS (4)
  - AGITATION [None]
  - PANIC ATTACK [None]
  - POOR QUALITY SLEEP [None]
  - PRESYNCOPE [None]
